FAERS Safety Report 7279663-1 (Version None)
Quarter: 2011Q1

REPORT INFORMATION
  Report Type: 
  Country: None (occurrence: None)
  Receive Date: 20110208
  Receipt Date: 20110131
  Transmission Date: 20110831
  Serious: Yes (Disabling, Other)
  Sender: FDA-Public Use
  Company Number: JP-PFIZER INC-2011013378

PATIENT
  Age: 37 Year
  Sex: Male

DRUGS (9)
  1. METHYCOBAL [Concomitant]
     Indication: HYPOAESTHESIA
     Dosage: 500 UG, 3X/DAY
     Route: 048
     Dates: start: 20110105
  2. DIHYDROCODEINE PHOSPHATE [Concomitant]
     Indication: ASTHMA
     Dosage: 1.0 G, 3X/DAY
     Route: 048
     Dates: start: 20110105, end: 20110112
  3. CLARITHROMYCIN [Concomitant]
     Indication: ASTHMA
     Dosage: 200 MG, 2X/DAY
     Route: 048
     Dates: start: 20110105, end: 20110112
  4. SOLANTAL [Concomitant]
     Indication: ASTHMA
     Dosage: UNK, 3X/DAY
     Route: 048
     Dates: start: 20110105, end: 20110112
  5. MAGNESIUM OXIDE [Concomitant]
     Indication: ASTHMA
     Dosage: 0.4 G, 3X/DAY
     Route: 048
     Dates: start: 20110105, end: 20110112
  6. CHAMPIX [Suspect]
     Indication: SMOKING CESSATION THERAPY
     Dosage: 0.5 MG, 1X/DAY
     Route: 048
     Dates: start: 20110113, end: 20110115
  7. COMPOUND EPITHANATE-G [Concomitant]
     Indication: ASTHMA
     Dosage: 0.67 G, 3X/DAY
     Route: 048
     Dates: start: 20110105, end: 20110112
  8. CHAMPIX [Suspect]
     Dosage: 0.5 MG, 2X/DAY
     Route: 048
     Dates: start: 20110116, end: 20110116
  9. THEO-DUR [Concomitant]
     Indication: ASTHMA
     Dosage: 40 MG, 3X/DAY
     Route: 048
     Dates: start: 20110105, end: 20110112

REACTIONS (3)
  - ATRIAL FIBRILLATION [None]
  - BLOOD PRESSURE INCREASED [None]
  - CHEST PAIN [None]
